FAERS Safety Report 7287989-0 (Version None)
Quarter: 2011Q1

REPORT INFORMATION
  Report Type: 
  Country: None (occurrence: None)
  Receive Date: 20110211
  Receipt Date: 20110129
  Transmission Date: 20110831
  Serious: Yes (Hospitalization)
  Sender: FDA-Public Use
  Company Number: PHHY2011MT07129

PATIENT
  Sex: Female

DRUGS (7)
  1. BENDROFLUAZIDE [Concomitant]
     Indication: HYPERTENSION
     Dosage: 5 MG DAILY
     Dates: start: 20080201
  2. ASPIRIN [Concomitant]
     Dosage: 75 MG DAILY
     Dates: start: 20100201
  3. ATENOLOL [Concomitant]
     Indication: HYPERTENSION
     Dosage: 50 MG DAILY
     Dates: start: 20000101
  4. LEVOTHYROXINE SODIUM [Concomitant]
     Dosage: 150 UG, UNK
  5. DIOVAN [Suspect]
     Indication: HYPERTENSION
     Dosage: 160 MG DAILY
     Route: 048
     Dates: start: 20080201
  6. LESCOL [Concomitant]
     Indication: HYPERLIPIDAEMIA
     Dosage: 40 MG DAILY
     Dates: start: 20070101
  7. LEVOTHYROXINE SODIUM [Concomitant]
     Indication: THYROIDECTOMY
     Dosage: 100 UG, UNK
     Dates: start: 19970101

REACTIONS (7)
  - FEELING HOT [None]
  - LOSS OF CONSCIOUSNESS [None]
  - GASTROENTERITIS [None]
  - SYNCOPE [None]
  - VISUAL ACUITY REDUCED [None]
  - BLOOD PRESSURE DECREASED [None]
  - BLOOD POTASSIUM DECREASED [None]
